FAERS Safety Report 7965352-4 (Version None)
Quarter: 2011Q4

REPORT INFORMATION
  Report Type: 
  Country: None (occurrence: None)
  Receive Date: 20111208
  Receipt Date: 20111128
  Transmission Date: 20120403
  Serious: Yes (Hospitalization)
  Sender: FDA-Public Use
  Company Number: PHHY2011ES104187

PATIENT
  Age: 76 Year
  Sex: Male

DRUGS (1)
  1. RIVASTIGMINE TARTRATE [Suspect]
     Indication: DEMENTIA ALZHEIMER'S TYPE
     Dosage: 4.6 MG/24 HOURS
     Route: 062
     Dates: start: 20111101

REACTIONS (3)
  - AKINESIA [None]
  - CONVULSION [None]
  - PANIC ATTACK [None]
